FAERS Safety Report 4893835-2 (Version None)
Quarter: 2006Q1

REPORT INFORMATION
  Report Type: 
  Country: None (occurrence: None)
  Receive Date: 20060127
  Receipt Date: 19960904
  Transmission Date: 20060701
  Serious: No
  Sender: FDA-Public Use
  Company Number: US-GLAXOSMITHKLINE-A0046130A

PATIENT
  Age: 51 Year
  Sex: Female

DRUGS (4)
  1. WELLBUTRIN [Suspect]
     Indication: DEPRESSION
     Dosage: 75MG PER DAY
     Route: 048
  2. WELLBUTRIN SR [Suspect]
     Indication: DEPRESSION
     Dosage: 100MG TWICE PER DAY
     Route: 048
     Dates: start: 20050130, end: 20050205
  3. CLARITIN [Concomitant]
     Route: 048
  4. ZOLOFT [Concomitant]
     Route: 048

REACTIONS (3)
  - AMNESIA [None]
  - INSOMNIA [None]
  - NAUSEA [None]
